FAERS Safety Report 5678388-3 (Version None)
Quarter: 2008Q1

REPORT INFORMATION
  Report Type: 
  Country: None (occurrence: None)
  Receive Date: 20080320
  Receipt Date: 20080304
  Transmission Date: 20080703
  Serious: Yes (Other)
  Sender: FDA-Public Use
  Company Number: PAR_02137_2008

PATIENT
  Age: 6 Year
  Sex: Male

DRUGS (3)
  1. IBUPROFEN [Suspect]
     Indication: DRUG USE FOR UNKNOWN INDICATION
     Dosage: DF
  2. CEFTRIAXONE [Suspect]
     Indication: ARTHRITIS BACTERIAL
     Dosage: 85 MG/KG, PER DAY FOR UNKNOWN FOR 30 MINUTES; INTRAVENOUS (NOT OTHERWISE SPECIFIED)
     Route: 042
  3. CEFTRIAXONE [Suspect]
     Indication: LYME DISEASE
     Dosage: 85 MG/KG, PER DAY FOR UNKNOWN FOR 30 MINUTES; INTRAVENOUS (NOT OTHERWISE SPECIFIED)
     Route: 042

REACTIONS (6)
  - ABDOMINAL PAIN LOWER [None]
  - CALCULUS URETERIC [None]
  - CHOLELITHIASIS [None]
  - HAEMATURIA [None]
  - HYDRONEPHROSIS [None]
  - VOMITING [None]
